FAERS Safety Report 18786112 (Version 1)
Quarter: 2021Q1

REPORT INFORMATION
  Report Type: Spontaneous
  Country: BR (occurrence: BR)
  Receive Date: 20210125
  Receipt Date: 20210125
  Transmission Date: 20210419
  Serious: Yes (Death, Hospitalization, Other)
  Sender: FDA-Public Use
  Company Number: BR-ASTRAZENECA-2021A011327

PATIENT
  Age: 52 Year
  Sex: Female

DRUGS (1)
  1. IRESSA [Suspect]
     Active Substance: GEFITINIB
     Dosage: 250.0MG UNKNOWN
     Route: 048
     Dates: start: 20201030

REACTIONS (4)
  - Cardiac disorder [Fatal]
  - Respiratory failure [Fatal]
  - Haematemesis [Fatal]
  - Lung disorder [Fatal]

NARRATIVE: CASE EVENT DATE: 2020
